FAERS Safety Report 10079166 (Version 1)
Quarter: 2014Q2

REPORT INFORMATION
  Report Type: Spontaneous
  Country: JP (occurrence: JP)
  Receive Date: 20140415
  Receipt Date: 20140415
  Transmission Date: 20141212
  Serious: Yes (Hospitalization, Disabling)
  Sender: FDA-Public Use
  Company Number: JP-SA-2014SA041493

PATIENT
  Age: 68 Year
  Sex: Male

DRUGS (5)
  1. ELPLAT [Suspect]
     Indication: PANCREATIC CARCINOMA
     Route: 041
     Dates: start: 20140318, end: 20140318
  2. CAMPTO [Suspect]
     Indication: PANCREATIC CARCINOMA
     Route: 041
     Dates: start: 20140318, end: 20140318
  3. CALCIUM LEVOFOLINATE [Suspect]
     Indication: PANCREATIC CARCINOMA
     Route: 041
     Dates: start: 20140318, end: 20140318
  4. 5-FU [Suspect]
     Indication: PANCREATIC CARCINOMA
     Route: 040
     Dates: start: 20140318, end: 20140318
  5. 5-FU [Suspect]
     Indication: PANCREATIC CARCINOMA
     Route: 041
     Dates: start: 20140318, end: 20140318

REACTIONS (1)
  - Infarction [Unknown]
